FAERS Safety Report 4797016-2 (Version None)
Quarter: 2005Q3

REPORT INFORMATION
  Report Type: 
  Country: None (occurrence: None)
  Receive Date: 20050916
  Receipt Date: 20050627
  Transmission Date: 20060218
  Serious: Yes (Other)
  Sender: FDA-Public Use
  Company Number: US-JNJFOC-20050203997

PATIENT
  Age: 30 Year
  Sex: Female
  Weight: 59.3305 kg

DRUGS (3)
  1. TOPAMAX [Suspect]
     Indication: AFFECTIVE DISORDER
     Dosage: 100 MG, IN 1 DAY, ORAL
     Route: 048
     Dates: start: 20040701
  2. TOPAMAX [Suspect]
     Indication: BIPOLAR DISORDER
     Dosage: 100 MG, IN 1 DAY, ORAL
     Route: 048
     Dates: start: 20040701
  3. TOPAMAX [Suspect]
     Indication: WEIGHT DECREASED
     Dosage: 100 MG, IN 1 DAY, ORAL
     Route: 048
     Dates: start: 20040701

REACTIONS (5)
  - ANGLE CLOSURE GLAUCOMA [None]
  - MYOPIA [None]
  - OPTIC NERVE DISORDER [None]
  - VISION BLURRED [None]
  - VISUAL DISTURBANCE [None]
